FAERS Safety Report 21124060 (Version 2)
Quarter: 2022Q3

REPORT INFORMATION
  Report Type: Spontaneous
  Country: US (occurrence: US)
  Receive Date: 20220725
  Receipt Date: 20220726
  Transmission Date: 20221027
  Serious: No
  Sender: FDA-Public Use
  Company Number: US-ORGANON-O2207USA001574

PATIENT
  Age: 50 Year
  Sex: Female

DRUGS (2)
  1. ASMANEX [Suspect]
     Active Substance: MOMETASONE FUROATE
     Indication: Asthma
     Dosage: 2 PUFFS TWICE DAILY
     Dates: start: 20220615
  2. ASMANEX [Concomitant]
     Active Substance: MOMETASONE FUROATE
     Indication: Asthma
     Dosage: 2 PUFFS TWICE A DAY (THERAPY START DATE REPORTED AS ABOUT 2-3 YEARS AGO)
     Dates: start: 2019

REACTIONS (3)
  - Lung disorder [Unknown]
  - Device malfunction [Unknown]
  - Poor quality device used [Unknown]

NARRATIVE: CASE EVENT DATE: 20220713
